FAERS Safety Report 7635037-2 (Version None)
Quarter: 2011Q3

REPORT INFORMATION
  Report Type: 
  Country: None (occurrence: None)
  Receive Date: 20110726
  Receipt Date: 20110715
  Transmission Date: 20111222
  Serious: Yes (Other)
  Sender: FDA-Public Use
  Company Number: US-GENZYME-THYM-1002623

PATIENT
  Sex: Female

DRUGS (2)
  1. THYMOGLOBULIN [Suspect]
     Indication: PROPHYLAXIS AGAINST TRANSPLANT REJECTION
     Dosage: 1.25 MG/KG, UNK
  2. THYMOGLOBULIN [Suspect]

REACTIONS (3)
  - PLATELET COUNT DECREASED [None]
  - HYPERTENSION [None]
  - HAEMORRHAGE [None]
